FAERS Safety Report 12810998 (Version 1)
Quarter: 2016Q4

REPORT INFORMATION
  Report Type: Spontaneous
  Country: US (occurrence: US)
  Receive Date: 20161005
  Receipt Date: 20161005
  Transmission Date: 20170207
  Serious: Yes (Disabling, Other)
  Sender: FDA-Public Use
  Company Number: None

PATIENT
  Age: 73 Year
  Sex: Female
  Weight: 79.38 kg

DRUGS (7)
  1. CHOLESTYRAMINE. [Concomitant]
     Active Substance: CHOLESTYRAMINE
  2. CENTRUM SILVER [Concomitant]
     Active Substance: MINERALS\VITAMINS
  3. FOLIC ACID. [Concomitant]
     Active Substance: FOLIC ACID
  4. LEVAQUIN [Suspect]
     Active Substance: LEVOFLOXACIN
     Indication: DIVERTICULITIS
     Route: 048
     Dates: start: 20160901, end: 20160905
  5. TRIAMTERENE. [Concomitant]
     Active Substance: TRIAMTERENE
  6. BABY ASPIRIN [Concomitant]
     Active Substance: ASPIRIN
  7. TOPROL XL [Concomitant]
     Active Substance: METOPROLOL SUCCINATE

REACTIONS (8)
  - Dysphonia [None]
  - Arthritis [None]
  - Horner^s syndrome [None]
  - Photosensitivity reaction [None]
  - Eyelid ptosis [None]
  - Anhidrosis [None]
  - Nerve injury [None]
  - Meningitis chemical [None]

NARRATIVE: CASE EVENT DATE: 20160902
